FAERS Safety Report 5171628-9 (Version None)
Quarter: 2006Q4

REPORT INFORMATION
  Report Type: 
  Country: None (occurrence: None)
  Receive Date: 20061213
  Receipt Date: 20061211
  Transmission Date: 20070319
  Serious: Yes (Death)
  Sender: FDA-Public Use
  Company Number: IL-NOVOPROD-259149

PATIENT
  Age: 72 Year
  Sex: Female

DRUGS (2)
  1. NOVOSEVEN [Suspect]
     Indication: HAEMORRHAGE
     Dosage: 6 MG, QD
     Dates: start: 20061206
  2. MANNITOL [Concomitant]

REACTIONS (2)
  - BRAIN HERNIATION [None]
  - INTRACRANIAL PRESSURE INCREASED [None]
